FAERS Safety Report 5759310-8 (Version None)
Quarter: 2008Q2

REPORT INFORMATION
  Report Type: 
  Country: None (occurrence: None)
  Receive Date: 20080602
  Receipt Date: 20080526
  Transmission Date: 20081010
  Serious: Yes (Hospitalization)
  Sender: FDA-Public Use
  Company Number: 14204960

PATIENT
  Sex: Female

DRUGS (1)
  1. REVIA TABS (NALTREXONE HCL) [Suspect]
     Dosage: 1 DOSAGE FORM 1 DAY;

REACTIONS (1)
  - RENAL FAILURE ACUTE [None]
